APPROVED DRUG PRODUCT: FLUDARABINE PHOSPHATE
Active Ingredient: FLUDARABINE PHOSPHATE
Strength: 50MG/VIAL
Dosage Form/Route: INJECTABLE;INJECTION
Application: A078544 | Product #001 | TE Code: AP
Applicant: FRESENIUS KABI USA LLC
Approved: Oct 15, 2007 | RLD: No | RS: No | Type: RX